FAERS Safety Report 8854587 (Version 1)
Quarter: 2012Q4

REPORT INFORMATION
  Report Type: 
  Country: BR (occurrence: BR)
  Receive Date: 20121023
  Receipt Date: 20121023
  Transmission Date: 20130627
  Serious: Yes (Death)
  Sender: FDA-Public Use
  Company Number: BR-ASTRAZENECA-2012SE80286

PATIENT
  Age: 76 Year
  Sex: Male

DRUGS (1)
  1. SYMBICORT TURBUHALER [Suspect]
     Dosage: 320/9 MCG, UNKNOWN FREQUENCY
     Route: 055

REACTIONS (1)
  - Emphysema [Fatal]
